FAERS Safety Report 6667055-5 (Version None)
Quarter: 2010Q2

REPORT INFORMATION
  Report Type: 
  Country: None (occurrence: None)
  Receive Date: 20100405
  Receipt Date: 20100322
  Transmission Date: 20101027
  Serious: No
  Sender: FDA-Public Use
  Company Number: US-B.I. PHARMACEUTICALS,INC./RIDGEFIELD-2010-BP-03281BP

PATIENT
  Sex: Female

DRUGS (2)
  1. MOBIC [Suspect]
     Indication: ARTHRITIS
     Dosage: 15 MG
     Route: 048
  2. PREDNISONE TAB [Concomitant]
     Indication: ARTHRITIS

REACTIONS (1)
  - NAUSEA [None]
